FAERS Safety Report 24140922 (Version 1)
Quarter: 2024Q3

REPORT INFORMATION
  Report Type: Report from Study
  Country: BR (occurrence: BR)
  Receive Date: 20240726
  Receipt Date: 20240726
  Transmission Date: 20241017
  Serious: Yes (Other)
  Sender: JOHNSON AND JOHNSON
  Company Number: BR-LAT-246644371014Em

PATIENT

DRUGS (1)
  1. REMICADE [Suspect]
     Active Substance: INFLIXIMAB
     Indication: Axial spondyloarthritis
     Route: 041

REACTIONS (11)
  - Neutropenia [Unknown]
  - Tuberculosis [Unknown]
  - Neoplasm malignant [Unknown]
  - Iridocyclitis [Not Recovered/Not Resolved]
  - Infusion related reaction [Unknown]
  - Drug specific antibody present [Unknown]
  - Urinary tract infection [Unknown]
  - Psoriasis [Unknown]
  - Hepatic enzyme increased [Unknown]
  - Breast mass [Unknown]
  - Treatment failure [Unknown]
